FAERS Safety Report 24247596 (Version 1)
Quarter: 2024Q3

REPORT INFORMATION
  Report Type: Spontaneous
  Country: JP (occurrence: JP)
  Receive Date: 20240826
  Receipt Date: 20240826
  Transmission Date: 20241016
  Serious: Yes (Other)
  Sender: ROCHE
  Company Number: JP-CHUGAI-2024028668AA

PATIENT
  Age: 68 Year
  Sex: Male
  Weight: 44 kg

DRUGS (1)
  1. TECENTRIQ [Suspect]
     Active Substance: ATEZOLIZUMAB
     Indication: Lung neoplasm malignant
     Dosage: 1200 MILLIGRAM, SINGLE
     Route: 042
     Dates: start: 20220727, end: 20220727

REACTIONS (2)
  - Adrenal insufficiency [Recovering/Resolving]
  - Adrenocorticotropic hormone deficiency [Recovering/Resolving]

NARRATIVE: CASE EVENT DATE: 20220807
